FAERS Safety Report 4380915-3 (Version None)
Quarter: 2004Q2

REPORT INFORMATION
  Report Type: 
  Country: None (occurrence: None)
  Receive Date: 20040616
  Receipt Date: 20040603
  Transmission Date: 20050107
  Serious: Yes (Hospitalization)
  Sender: FDA-Public Use
  Company Number: 2004037624

PATIENT
  Age: 60 Year
  Sex: Male

DRUGS (10)
  1. NEURONTIN [Suspect]
     Indication: ILL-DEFINED DISORDER
     Dosage: ORAL
     Route: 048
     Dates: end: 20031221
  2. CARBAMAZEPINE [Suspect]
     Indication: ILL-DEFINED DISORDER
     Dosage: ORAL
     Route: 048
     Dates: end: 20031221
  3. APOREX (DEXTROPROPOXYPHENE HYDROCHLORIDE, PARACETAMOL) [Suspect]
     Indication: ILL-DEFINED DISORDER
     Dosage: ORAL
     Route: 048
     Dates: end: 20031221
  4. PRISTINAMYCIN (PRISTINAMYCIN) [Concomitant]
  5. OMEPRAZOLE [Concomitant]
  6. FUROSEMIDE [Concomitant]
  7. BUFLOMEDIL (BUFLOMEDIL) [Concomitant]
  8. LISINOPRIL [Concomitant]
  9. INSULIN [Concomitant]
  10. ZOPICLONE (ZOPICLONE) [Concomitant]

REACTIONS (3)
  - ALCOHOL USE [None]
  - CHOLESTASIS [None]
  - CYTOLYTIC HEPATITIS [None]
